FAERS Safety Report 9293110 (Version 1)
Quarter: 2013Q2

REPORT INFORMATION
  Report Type: Spontaneous
  Country: US (occurrence: None)
  Receive Date: 20130514
  Receipt Date: 20130514
  Transmission Date: 20140414
  Serious: Yes (Death, Other)
  Sender: FDA-Public Use
  Company Number: TPA2013A03460

PATIENT
  Age: 55 Year
  Sex: Male
  Weight: 72.58 kg

DRUGS (6)
  1. ACTOPLUS MET (PIOGLITAZONE HYDROCHLORIDE, METFORMIN HYDROCHLORIDE) [Suspect]
     Indication: TYPE 2 DIABETES MELLITUS
     Dates: start: 200708, end: 200807
  2. METFORMIN (METFORMIN) [Concomitant]
  3. STARLIX (NATEGLINIDE) TABLET [Concomitant]
  4. LANTUS (INSULIN GLARGINE) [Concomitant]
  5. JANUVIA (SITAGLIPTIN PHOSPHATE) [Concomitant]
  6. AVANDAMET (METFORMIN HYDROCHLORIDE, ROSIGLITAZONE MALEATE) [Concomitant]

REACTIONS (1)
  - Bladder cancer [None]
